FAERS Safety Report 23242649 (Version 3)
Quarter: 2023Q4

REPORT INFORMATION
  Report Type: Spontaneous
  Country: JP (occurrence: JP)
  Receive Date: 20231129
  Receipt Date: 20231227
  Transmission Date: 20240109
  Serious: Yes (Hospitalization)
  Sender: FDA-Public Use
  Company Number: JP-BEH-2023165091

PATIENT
  Age: 1 Year
  Sex: Female

DRUGS (7)
  1. BERINERT [Suspect]
     Active Substance: HUMAN C1-ESTERASE INHIBITOR
     Indication: Hereditary angioedema
     Dosage: 20 INTERNATIONAL UNIT/KILOGRAM (1 VIAL), SINGLE
     Route: 042
     Dates: start: 20220925, end: 20220925
  2. BERINERT [Suspect]
     Active Substance: HUMAN C1-ESTERASE INHIBITOR
     Indication: Hereditary angioedema
     Dosage: 20 INTERNATIONAL UNIT/KILOGRAM (1 VIAL), SINGLE
     Route: 042
     Dates: start: 20220925, end: 20220925
  3. BERINERT [Suspect]
     Active Substance: HUMAN C1-ESTERASE INHIBITOR
     Dosage: 1 VIAL, SINGLE
     Route: 042
     Dates: start: 20220813, end: 20220813
  4. BERINERT [Suspect]
     Active Substance: HUMAN C1-ESTERASE INHIBITOR
     Dosage: 1 VIAL, SINGLE
     Route: 042
     Dates: start: 20220813, end: 20220813
  5. TRANSAMIN [Concomitant]
     Active Substance: TRANEXAMIC ACID
     Dosage: UNK
     Route: 042
     Dates: start: 20220813, end: 20220813
  6. TRANSAMIN [Concomitant]
     Active Substance: TRANEXAMIC ACID
     Dosage: 10 MILLIGRAM/KILOGRAM
     Route: 042
     Dates: start: 20220925, end: 20220925
  7. TRANSAMIN [Concomitant]
     Active Substance: TRANEXAMIC ACID
     Dosage: 100 MILLIGRAM
     Route: 048
     Dates: start: 20220925, end: 20220925

REACTIONS (1)
  - Therapeutic product effect delayed [Recovered/Resolved]

NARRATIVE: CASE EVENT DATE: 20220925
